FAERS Safety Report 24046108 (Version 1)
Quarter: 2024Q3

REPORT INFORMATION
  Report Type: Spontaneous
  Country: BR (occurrence: BR)
  Receive Date: 20240703
  Receipt Date: 20240703
  Transmission Date: 20241017
  Serious: Yes (Other)
  Sender: PFIZER
  Company Number: BR-TAKEDA-2016EPA000986

PATIENT
  Age: 69 Year
  Sex: Female
  Weight: 56 kg

DRUGS (10)
  1. PANTOPRAZOLE [Suspect]
     Active Substance: PANTOPRAZOLE
     Dosage: UNK
     Route: 065
  2. DIBUCAINE\POLICRESULEN [Suspect]
     Active Substance: DIBUCAINE\POLICRESULEN
     Dosage: 1 DOSAGE FORM, BID
     Route: 054
     Dates: start: 20160517, end: 20160520
  3. DEXILANT [Suspect]
     Active Substance: DEXLANSOPRAZOLE
     Indication: Abdominal pain upper
     Dosage: 30 MILLIGRAM, QD
     Route: 048
  4. DEXILANT [Suspect]
     Active Substance: DEXLANSOPRAZOLE
     Indication: Reflux gastritis
  5. DEXILANT [Suspect]
     Active Substance: DEXLANSOPRAZOLE
     Indication: Dyspepsia
  6. DEXILANT [Suspect]
     Active Substance: DEXLANSOPRAZOLE
     Indication: Gastritis
  7. LETROZOLE [Concomitant]
     Active Substance: LETROZOLE
     Indication: Blood cholesterol abnormal
     Dosage: UNK
  8. ATENOLOL [Concomitant]
     Active Substance: ATENOLOL
     Indication: Hypertension
     Dosage: UNK
  9. RABEPRAZOLE [Concomitant]
     Active Substance: RABEPRAZOLE
     Dosage: 20 MILLIGRAM
  10. DOMPERIDONE/PANCREATIN/SIMETICONE [Concomitant]
     Dosage: UNK

REACTIONS (9)
  - Barrett^s oesophagus [Unknown]
  - Headache [Unknown]
  - Dyspepsia [Unknown]
  - Gastrooesophageal reflux disease [Unknown]
  - Abdominal pain upper [Recovered/Resolved]
  - Feeding disorder [Unknown]
  - Taste disorder [Unknown]
  - Haemorrhoids [Recovering/Resolving]
  - Decreased appetite [Unknown]
